FAERS Safety Report 8900518 (Version 1)
Quarter: 2012Q4

REPORT INFORMATION
  Report Type: 
  Country: US (occurrence: US)
  Receive Date: 20121109
  Receipt Date: 20121109
  Transmission Date: 20130627
  Serious: Yes (Hospitalization, Other)
  Sender: FDA-Public Use
  Company Number: US-BAYER-2012-089707

PATIENT
  Age: 37 Year
  Sex: Male
  Weight: 54 kg

DRUGS (7)
  1. BETASERON [Suspect]
     Indication: RELAPSING-REMITTING MULTIPLE SCLEROSIS
     Dosage: UNK
     Dates: start: 20080613, end: 20090126
  2. BETASERON [Suspect]
     Indication: RELAPSING-REMITTING MULTIPLE SCLEROSIS
     Dosage: UNK
     Dates: start: 20100402, end: 20100503
  3. BETASERON [Suspect]
     Indication: RELAPSING-REMITTING MULTIPLE SCLEROSIS
     Dosage: UNK
     Dates: start: 20100701, end: 20110415
  4. BETASERON [Suspect]
     Indication: RELAPSING-REMITTING MULTIPLE SCLEROSIS
     Dosage: 250 ?g, QOD
     Route: 058
     Dates: end: 20120807
  5. BETASERON [Suspect]
     Indication: RELAPSING-REMITTING MULTIPLE SCLEROSIS
     Dosage: 2 miu, QOD
     Route: 058
     Dates: start: 20120825
  6. TYLENOL REGULAR [Concomitant]
     Indication: PREMEDICATION
  7. TIZANIDINE [Concomitant]
     Indication: SPASTIC PARAPARESIS
     Dosage: 2 mg, TID
     Route: 048
     Dates: start: 20060305

REACTIONS (5)
  - Urinary tract infection [Recovered/Resolved]
  - Jaundice [Recovered/Resolved]
  - Urosepsis [Recovered/Resolved]
  - Hepatic enzyme increased [Recovered/Resolved]
  - White blood cell count decreased [Recovered/Resolved]
